FAERS Safety Report 13772404 (Version 2)
Quarter: 2017Q3

REPORT INFORMATION
  Report Type: Report from Study
  Country: US (occurrence: US)
  Receive Date: 20170720
  Receipt Date: 20170825
  Transmission Date: 20171127
  Serious: Yes (Hospitalization, Other)
  Sender: FDA-Public Use
  Company Number: US-BAYER-2017-121025

PATIENT
  Age: 67 Year
  Sex: Female
  Weight: 99.77 kg

DRUGS (15)
  1. PERCOCET [Concomitant]
     Active Substance: ACETAMINOPHEN\OXYCODONE HYDROCHLORIDE
     Dosage: 325 MG
  2. STIVARGA [Suspect]
     Active Substance: REGORAFENIB
     Indication: COLON CANCER
     Dosage: 160 MG, QD, DAILY FOR 21 DAYS
     Route: 048
     Dates: start: 20170606, end: 2017
  3. STIVARGA [Suspect]
     Active Substance: REGORAFENIB
     Indication: COLON CANCER
     Dosage: 160 MG, QD, DAILY FOR 21 DAYS
     Route: 048
     Dates: start: 2017
  4. PEPCID [Concomitant]
     Active Substance: FAMOTIDINE
     Dosage: 20MG
  5. AMLODIPINE BESYLATE. [Concomitant]
     Active Substance: AMLODIPINE BESYLATE
     Dosage: 10 MG
  6. ALDACTONE [POTASSIUM CANRENOATE] [Concomitant]
     Active Substance: CANRENOATE POTASSIUM
     Dosage: 25 MG
  7. POTASSIUM CHLORIDE. [Concomitant]
     Active Substance: POTASSIUM CHLORIDE
  8. CONSTULOSE [Concomitant]
     Active Substance: LACTULOSE
     Indication: INFREQUENT BOWEL MOVEMENTS
     Dosage: 10G/15ML
  9. CALCIUM D3 [CALCIUM CARBONATE,COLECALCIFEROL] [Concomitant]
     Active Substance: CALCIUM CARBONATE\CHOLECALCIFEROL
     Dosage: 500 TABLET , ER
  10. LASIX [Concomitant]
     Active Substance: FUROSEMIDE
     Dosage: 40 MG
  11. TRAMADOL HCL CF [Concomitant]
     Dosage: 50 MG
  12. SYNTHROID [Concomitant]
     Active Substance: LEVOTHYROXINE SODIUM
     Dosage: 100 MCG
  13. MAGNESIUM OXIDE. [Concomitant]
     Active Substance: MAGNESIUM OXIDE
     Dosage: 400 MG
  14. LOMOTIL [Concomitant]
     Active Substance: ATROPINE SULFATE\DIPHENOXYLATE HYDROCHLORIDE
     Dosage: 0.25 MG
  15. ZOFRAN [Concomitant]
     Active Substance: ONDANSETRON HYDROCHLORIDE
     Dosage: 8MG

REACTIONS (5)
  - Nausea [None]
  - Hepatic cirrhosis [Unknown]
  - Mental disorder [Unknown]
  - Hospitalisation [Unknown]
  - Cystitis [Unknown]

NARRATIVE: CASE EVENT DATE: 2017
